FAERS Safety Report 5835069-0 (Version None)
Quarter: 2008Q3

REPORT INFORMATION
  Report Type: 
  Country: None (occurrence: None)
  Receive Date: 20080805
  Receipt Date: 20080805
  Transmission Date: 20090109
  Serious: Yes (Death, Hospitalization)
  Sender: FDA-Public Use
  Company Number: None

PATIENT
  Sex: Female
  Weight: 58.9676 kg

DRUGS (1)
  1. ENBREL [Suspect]
     Indication: RHEUMATOID ARTHRITIS
     Dosage: PRE FILLED SYRINGE ONCE WEEKLY IM
     Route: 030
     Dates: start: 20050101, end: 20080601

REACTIONS (2)
  - HEPATIC CANCER METASTATIC [None]
  - PANCREATIC CARCINOMA [None]
